FAERS Safety Report 15784471 (Version 1)
Quarter: 2019Q1

REPORT INFORMATION
  Report Type: Report from Study
  Country: IT (occurrence: IT)
  Receive Date: 20190103
  Receipt Date: 20190103
  Transmission Date: 20190417
  Serious: Yes (Hospitalization)
  Sender: FDA-Public Use
  Company Number: IT-ACCORD-099746

PATIENT
  Age: 79 Year
  Sex: Male

DRUGS (10)
  1. CLOPIDOGREL [Suspect]
     Active Substance: CLOPIDOGREL BISULFATE
     Indication: THROMBOSIS PROPHYLAXIS
     Route: 048
     Dates: end: 20180215
  2. CARDURA [Concomitant]
     Active Substance: DOXAZOSIN MESYLATE
     Route: 048
  3. TORVAST [Concomitant]
     Active Substance: ATORVASTATIN
     Route: 048
  4. PROCAPTAN [Concomitant]
     Active Substance: PERINDOPRIL ERBUMINE
     Route: 048
  5. FORMOTEROL [Concomitant]
     Active Substance: FORMOTEROL
     Route: 055
  6. LASIX [Concomitant]
     Active Substance: FUROSEMIDE
     Route: 048
  7. GASTROLOC [Concomitant]
     Route: 048
  8. PRADAXA [Suspect]
     Active Substance: DABIGATRAN ETEXILATE MESYLATE
     Indication: ANTICOAGULANT THERAPY
     Route: 048
     Dates: end: 20180216
  9. SOTALOL. [Concomitant]
     Active Substance: SOTALOL
     Route: 048
  10. PERMIXON [Concomitant]
     Active Substance: HERBALS\SAW PALMETTO
     Route: 048

REACTIONS (1)
  - Haemoptysis [Recovering/Resolving]

NARRATIVE: CASE EVENT DATE: 20180205
